FAERS Safety Report 6248651-6 (Version None)
Quarter: 2009Q2

REPORT INFORMATION
  Report Type: 
  Country: None (occurrence: None)
  Receive Date: 20090629
  Receipt Date: 20090622
  Transmission Date: 20091009
  Serious: Yes (Death, Hospitalization)
  Sender: FDA-Public Use
  Company Number: DE-CELGENEUS-062-21880-09042669

PATIENT
  Sex: Male
  Weight: 76.5 kg

DRUGS (3)
  1. REVLIMID [Suspect]
     Indication: MULTIPLE MYELOMA
     Route: 048
     Dates: start: 20090428
  2. FORTECORTIN [Suspect]
     Indication: MULTIPLE MYELOMA
     Route: 065
     Dates: start: 20090428, end: 20090429
  3. ZOMETA [Concomitant]
     Indication: MULTIPLE MYELOMA
     Route: 065

REACTIONS (3)
  - DIABETES MELLITUS [None]
  - PNEUMONIA [None]
  - SEPSIS [None]
